FAERS Safety Report 8558854 (Version 3)
Quarter: 2013Q4

REPORT INFORMATION
  Report Type: Spontaneous
  Country: US (occurrence: US)
  Receive Date: 20120507
  Receipt Date: 20131108
  Transmission Date: 20140711
  Serious: Yes (Hospitalization, Disabling, Other)
  Sender: FDA-Public Use
  Company Number: US-009507513-2011SP056191

PATIENT
  Age: 23 Year
  Sex: Female
  Weight: 68.4 kg

DRUGS (4)
  1. NUVARING [Suspect]
     Indication: CONTRACEPTION
     Dates: start: 200505, end: 20081215
  2. TRAZODONE HYDROCHLORIDE [Suspect]
     Indication: SUICIDAL IDEATION
     Dates: start: 2008, end: 20080818
  3. TRAZODONE HYDROCHLORIDE [Suspect]
     Indication: MOOD SWINGS
  4. CELEXA [Concomitant]
     Indication: PRODUCT USED FOR UNKNOWN INDICATION
     Dates: start: 200805

REACTIONS (12)
  - Cellulitis [Unknown]
  - Staphylococcal infection [Unknown]
  - Abscess [Unknown]
  - Pulmonary embolism [Recovered/Resolved]
  - Anxiety [Unknown]
  - Suicidal ideation [Unknown]
  - Bipolar disorder [Unknown]
  - Rhinitis allergic [Not Recovered/Not Resolved]
  - Arthropod bite [Unknown]
  - Mood swings [Unknown]
  - Somnolence [Unknown]
  - Upper respiratory tract infection [Unknown]
